FAERS Safety Report 5012708-8 (Version None)
Quarter: 2006Q2

REPORT INFORMATION
  Report Type: 
  Country: None (occurrence: None)
  Receive Date: 20060524
  Receipt Date: 20060515
  Transmission Date: 20061013
  Serious: Yes (Other)
  Sender: FDA-Public Use
  Company Number: 2006059890

PATIENT
  Age: 30 Year
  Sex: Female
  Weight: 102 kg

DRUGS (2)
  1. DEPO-PROVERA [Suspect]
     Indication: CONTRACEPTION
     Dosage: SEE IMAGE
     Route: 030
     Dates: start: 20040906, end: 20040906
  2. DEPO-PROVERA [Suspect]
     Indication: CONTRACEPTION
     Dosage: SEE IMAGE
     Route: 030
     Dates: start: 20060407, end: 20060407

REACTIONS (4)
  - COUGH [None]
  - DYSPNOEA [None]
  - LOCALISED INFECTION [None]
  - URTICARIA [None]
